FAERS Safety Report 22254429 (Version 6)
Quarter: 2024Q4

REPORT INFORMATION
  Report Type: Report from Study
  Country: US (occurrence: US)
  Receive Date: 20230426
  Receipt Date: 20241119
  Transmission Date: 20250115
  Serious: Yes (Other)
  Sender: ROCHE
  Company Number: US-ROCHE-3337398

PATIENT
  Age: 74 Year
  Sex: Female

DRUGS (3)
  1. XOLAIR PFS [Suspect]
     Active Substance: OMALIZUMAB
     Indication: Chronic spontaneous urticaria
     Route: 058
  2. XOLAIR PFS [Suspect]
     Active Substance: OMALIZUMAB
     Route: 058
  3. XOLAIR PFS [Suspect]
     Active Substance: OMALIZUMAB
     Route: 058

REACTIONS (3)
  - Type 2 diabetes mellitus [Unknown]
  - Type 1 diabetes mellitus [Unknown]
  - Off label use [Unknown]
